FAERS Safety Report 7324104-9 (Version None)
Quarter: 2011Q1

REPORT INFORMATION
  Report Type: 
  Country: None (occurrence: None)
  Receive Date: 20110217
  Receipt Date: 20110207
  Transmission Date: 20110831
  Serious: Yes (Other)
  Sender: FDA-Public Use
  Company Number: IPC201102-000114

PATIENT
  Sex: Female

DRUGS (3)
  1. METOCLOPRAMIDE [Suspect]
     Dosage: 10 MG, ORAL
     Route: 048
     Dates: start: 20061101, end: 20090701
  2. METOCLOPRAMIDE [Suspect]
     Dosage: 10 MG, ORAL
     Route: 048
     Dates: start: 20061101, end: 20090701
  3. METOCLOPRAMIDE [Suspect]
     Dosage: 10 MG, ORAL
     Route: 048
     Dates: start: 20061101, end: 20090701

REACTIONS (1)
  - RESTLESS LEGS SYNDROME [None]
